FAERS Safety Report 25272254 (Version 1)
Quarter: 2025Q2

REPORT INFORMATION
  Report Type: Spontaneous
  Country: CN (occurrence: CN)
  Receive Date: 20250506
  Receipt Date: 20250506
  Transmission Date: 20250717
  Serious: Yes (Hospitalization)
  Sender: ROCHE
  Company Number: CN-ROCHE-10000269913

PATIENT
  Age: 69 Year
  Sex: Male

DRUGS (15)
  1. AVASTIN [Suspect]
     Active Substance: BEVACIZUMAB
     Indication: Adenocarcinoma of colon
     Route: 042
     Dates: start: 20250331, end: 20250331
  2. AVASTIN [Suspect]
     Active Substance: BEVACIZUMAB
     Indication: Cerebral infarction
  3. AVASTIN [Suspect]
     Active Substance: BEVACIZUMAB
     Indication: Hypertension
  4. AVASTIN [Suspect]
     Active Substance: BEVACIZUMAB
     Indication: Spinal osteoarthritis
  5. AVASTIN [Suspect]
     Active Substance: BEVACIZUMAB
     Indication: Atrial fibrillation
  6. OXALIPLATIN [Suspect]
     Active Substance: OXALIPLATIN
     Indication: Adenocarcinoma of colon
     Route: 042
     Dates: start: 20250331, end: 20250331
  7. OXALIPLATIN [Suspect]
     Active Substance: OXALIPLATIN
     Indication: Cerebral infarction
  8. OXALIPLATIN [Suspect]
     Active Substance: OXALIPLATIN
     Indication: Hypertension
  9. OXALIPLATIN [Suspect]
     Active Substance: OXALIPLATIN
     Indication: Spinal osteoarthritis
  10. OXALIPLATIN [Suspect]
     Active Substance: OXALIPLATIN
     Indication: Atrial fibrillation
  11. RALTITREXED [Suspect]
     Active Substance: RALTITREXED
     Indication: Adenocarcinoma of colon
     Route: 042
     Dates: start: 20250331, end: 20250331
  12. RALTITREXED [Suspect]
     Active Substance: RALTITREXED
     Indication: Cerebral infarction
  13. RALTITREXED [Suspect]
     Active Substance: RALTITREXED
     Indication: Hypertension
  14. RALTITREXED [Suspect]
     Active Substance: RALTITREXED
     Indication: Spinal osteoarthritis
  15. RALTITREXED [Suspect]
     Active Substance: RALTITREXED
     Indication: Atrial fibrillation

REACTIONS (5)
  - Neutrophil count decreased [Recovering/Resolving]
  - Platelet count decreased [Recovering/Resolving]
  - Alanine aminotransferase increased [Not Recovered/Not Resolved]
  - White blood cell count decreased [Recovering/Resolving]
  - Aspartate aminotransferase increased [Recovering/Resolving]

NARRATIVE: CASE EVENT DATE: 20250402
